FAERS Safety Report 9036201 (Version 1)
Quarter: 2013Q1

REPORT INFORMATION
  Report Type: Spontaneous
  Country: US (occurrence: None)
  Receive Date: 20130117
  Receipt Date: 20130117
  Transmission Date: 20140127
  Serious: Yes (Disabling)
  Sender: FDA-Public Use
  Company Number: None

PATIENT
  Age: 68 Year
  Sex: Male

DRUGS (8)
  1. DORZOLAMIDE HYDROCHLORIDE AND TIMOLOL MALEATE [Suspect]
     Dosage: 1 DROP IN EACH EYE TWO TIME DAILY OPTHALMIC
     Route: 047
     Dates: start: 20110915
  2. XALATON [Concomitant]
  3. VIAGRA [Concomitant]
  4. LISINOPRIL [Concomitant]
  5. SIMVASTATIN [Concomitant]
  6. IMIPRAMINE [Concomitant]
  7. CLORAZEPATE [Concomitant]
  8. CHLORTHALIDONE [Concomitant]

REACTIONS (2)
  - Intraocular pressure increased [None]
  - Blindness [None]
